FAERS Safety Report 5593006-0 (Version None)
Quarter: 2008Q1

REPORT INFORMATION
  Report Type: 
  Country: None (occurrence: None)
  Receive Date: 20080114
  Receipt Date: 20080114
  Transmission Date: 20080703
  Serious: Yes (Hospitalization)
  Sender: FDA-Public Use
  Company Number: None

PATIENT
  Age: 70 Year
  Sex: Male
  Weight: 76 kg

DRUGS (11)
  1. SUNITINIB 25 MG PO DAILY [Suspect]
     Indication: NON-SMALL CELL LUNG CANCER
     Dosage: 25 MG DAILY PO
     Route: 048
     Dates: start: 20071119, end: 20071203
  2. SUNITINIB 25 MG PO DAILY [Suspect]
     Indication: NON-SMALL CELL LUNG CANCER
     Dosage: 25 MG DAILY PO
     Route: 048
     Dates: start: 20071211, end: 20071223
  3. ERLOTINIB 125 MG PO DAILY [Suspect]
     Indication: NON-SMALL CELL LUNG CANCER
     Dosage: 125 MG DAILY PO
     Route: 048
     Dates: start: 20071119, end: 20071203
  4. ERLOTINIB 125 MG PO DAILY [Suspect]
     Indication: NON-SMALL CELL LUNG CANCER
     Dosage: 125 MG DAILY PO
     Route: 048
     Dates: start: 20071211, end: 20071223
  5. ASPIRIN [Concomitant]
  6. M.V.I. [Concomitant]
  7. XALATAN [Concomitant]
  8. DOXYCYCLINE [Concomitant]
  9. VITAMIN D [Concomitant]
  10. METRONIDAZOLE GEL [Concomitant]
  11. DILAUDID [Concomitant]

REACTIONS (4)
  - EYELID DISORDER [None]
  - HYPOMAGNESAEMIA [None]
  - ILEUS [None]
  - RASH [None]
